FAERS Safety Report 20299340 (Version 1)
Quarter: 2022Q1

REPORT INFORMATION
  Report Type: Spontaneous
  Country: US (occurrence: None)
  Receive Date: 20220104
  Receipt Date: 20220104
  Transmission Date: 20220424
  Serious: No
  Sender: FDA-Public Use
  Company Number: None

PATIENT
  Age: 32 Year
  Sex: Female
  Weight: 88.2 kg

DRUGS (1)
  1. NITROFURANTOIN [Suspect]
     Active Substance: NITROFURANTOIN
     Indication: Urinary tract infection
     Dosage: OTHER QUANTITY : 4 TEASPOON(S);?FREQUENCY : EVERY 12 HOURS;?
     Route: 048
     Dates: start: 20211231, end: 20220101

REACTIONS (6)
  - Fatigue [None]
  - Back pain [None]
  - Dyspnoea [None]
  - Nausea [None]
  - Depression [None]
  - Adverse drug reaction [None]

NARRATIVE: CASE EVENT DATE: 20220101
